FAERS Safety Report 5161120-X (Version None)
Quarter: 2006Q4

REPORT INFORMATION
  Report Type: 
  Country: None (occurrence: None)
  Receive Date: 20061121
  Receipt Date: 20061106
  Transmission Date: 20070319
  Serious: Yes (Other)
  Sender: FDA-Public Use
  Company Number: 2006SP005870

PATIENT

DRUGS (3)
  1. TEMODAL [Suspect]
     Indication: ANAPLASTIC ASTROCYTOMA
  2. TEMODAL [Suspect]
     Indication: GLIOBLASTOMA
  3. RADIATION THERAPY [Concomitant]

REACTIONS (1)
  - VENOUS THROMBOSIS [None]
